FAERS Safety Report 21439806 (Version 1)
Quarter: 2022Q4

REPORT INFORMATION
  Report Type: Spontaneous
  Country: CN (occurrence: CN)
  Receive Date: 20221011
  Receipt Date: 20221011
  Transmission Date: 20230113
  Serious: Yes (Other)
  Sender: FDA-Public Use
  Company Number: CN-ELI_LILLY_AND_COMPANY-CN202209014138

PATIENT
  Age: 52 Year
  Sex: Male
  Weight: 70 kg

DRUGS (1)
  1. HUMALOG MIX50/50 [Suspect]
     Active Substance: INSULIN LISPRO
     Indication: Type 2 diabetes mellitus
     Dosage: 10 U, TID
     Route: 058
     Dates: start: 20220906, end: 20220923

REACTIONS (3)
  - Rectal cancer [Unknown]
  - Injection site erythema [Recovered/Resolved]
  - Injection site rash [Recovered/Resolved]

NARRATIVE: CASE EVENT DATE: 20220906
